FAERS Safety Report 15559539 (Version 4)
Quarter: 2019Q1

REPORT INFORMATION
  Report Type: Spontaneous
  Country: GB (occurrence: GB)
  Receive Date: 20181029
  Receipt Date: 20190226
  Transmission Date: 20190417
  Serious: Yes (Life-Threatening, Hospitalization, Other)
  Sender: FDA-Public Use
  Company Number: GB-AUROBINDO-AUR-APL-2018-052325

PATIENT

DRUGS (2)
  1. PARACETAMOL [Suspect]
     Active Substance: ACETAMINOPHEN
     Indication: UPPER RESPIRATORY TRACT INFECTION
     Dosage: UNK
     Route: 048
  2. IBUPROFEN. [Suspect]
     Active Substance: IBUPROFEN
     Indication: UPPER RESPIRATORY TRACT INFECTION
     Dosage: UNK
     Route: 048

REACTIONS (17)
  - Mucosal inflammation [Unknown]
  - Symblepharon [Recovering/Resolving]
  - Ocular hyperaemia [Unknown]
  - Mouth ulceration [Unknown]
  - Genital ulceration [Unknown]
  - Conjunctivitis [Unknown]
  - Dysphagia [Unknown]
  - Eyelid oedema [Unknown]
  - Blister [Unknown]
  - Ocular surface disease [Unknown]
  - Lip swelling [Unknown]
  - Rash erythematous [Unknown]
  - Toxic epidermal necrolysis [Recovering/Resolving]
  - Upper respiratory tract infection [Unknown]
  - Rash [Unknown]
  - Obstructive airways disorder [Unknown]
  - Erythema [Unknown]
